FAERS Safety Report 20694837 (Version 1)
Quarter: 2022Q2

REPORT INFORMATION
  Report Type: Spontaneous
  Country: EC (occurrence: None)
  Receive Date: 20220408
  Receipt Date: 20220408
  Transmission Date: 20220721
  Serious: Yes (Disabling)
  Sender: FDA-Public Use
  Company Number: None

PATIENT
  Age: 18 Year
  Sex: Male
  Weight: 45.9 kg

DRUGS (6)
  1. PROSCAR [Suspect]
     Active Substance: FINASTERIDE
     Indication: Alopecia
     Dosage: FREQUENCY : DAILY;?
     Route: 048
  2. AVODART [Suspect]
     Active Substance: DUTASTERIDE
  3. Nada funciona [Concomitant]
  4. prob? cialis [Concomitant]
  5. desmopresina para la miccion [Concomitant]
  6. ZOLPIDEM [Concomitant]
     Active Substance: ZOLPIDEM TARTRATE

REACTIONS (7)
  - Insomnia [None]
  - Feeling abnormal [None]
  - Erectile dysfunction [None]
  - Genital hypoaesthesia [None]
  - Anorgasmia [None]
  - Pollakiuria [None]
  - Therapy cessation [None]

NARRATIVE: CASE EVENT DATE: 20190811
